FAERS Safety Report 16983783 (Version 1)
Quarter: 2019Q4

REPORT INFORMATION
  Report Type: Spontaneous
  Country: US (occurrence: US)
  Receive Date: 20191101
  Receipt Date: 20191101
  Transmission Date: 20200122
  Serious: Yes (Hospitalization)
  Sender: FDA-Public Use
  Company Number: US-ZYDUS-042741

PATIENT
  Age: 66 Year
  Sex: Male

DRUGS (3)
  1. RIVASTIGMINE/RIVASTIGMINE TARTRATE [Suspect]
     Active Substance: RIVASTIGMINE
     Indication: DEMENTIA WITH LEWY BODIES
  2. QUETIAPINE. [Suspect]
     Active Substance: QUETIAPINE
     Indication: DEMENTIA WITH LEWY BODIES
  3. QUETIAPINE. [Suspect]
     Active Substance: QUETIAPINE
     Indication: DEMENTIA WITH LEWY BODIES

REACTIONS (6)
  - Muscle rigidity [Unknown]
  - Pyrexia [Unknown]
  - Tachycardia [Unknown]
  - Mental status changes [Recovered/Resolved]
  - Neuroleptic malignant syndrome [Unknown]
  - Listless [Unknown]
